FAERS Safety Report 5554293-8 (Version None)
Quarter: 2007Q4

REPORT INFORMATION
  Report Type: 
  Country: None (occurrence: None)
  Receive Date: 20071213
  Receipt Date: 20071203
  Transmission Date: 20080405
  Serious: Yes (Hospitalization)
  Sender: FDA-Public Use
  Company Number: B0499452A

PATIENT
  Sex: Female

DRUGS (3)
  1. DEROXAT [Suspect]
     Indication: DEPRESSION
     Route: 048
  2. INEXIUM [Suspect]
     Route: 048
  3. NEURONTIN [Suspect]
     Route: 048

REACTIONS (5)
  - BRAIN OEDEMA [None]
  - HEADACHE [None]
  - HYPONATRAEMIA [None]
  - INTRACRANIAL PRESSURE INCREASED [None]
  - VOMITING [None]
